FAERS Safety Report 17854099 (Version 2)
Quarter: 2020Q4

REPORT INFORMATION
  Report Type: Spontaneous
  Country: US (occurrence: US)
  Receive Date: 20200603
  Receipt Date: 20201207
  Transmission Date: 20210113
  Serious: No
  Sender: FDA-Public Use
  Company Number: US-009507513-2006USA000431

PATIENT
  Sex: Female

DRUGS (6)
  1. STERILE DILUENT (WATER) [Suspect]
     Active Substance: WATER
     Indication: UTERINE LEIOMYOMA
  2. PREGNYL [Suspect]
     Active Substance: CHORIOGONADOTROPIN ALFA
     Indication: ENDOMETRIOSIS
     Dosage: 10000 UNITS AS DIRECTED
     Route: 030
     Dates: start: 202003
  3. STERILE DILUENT (WATER) [Suspect]
     Active Substance: WATER
     Indication: ENDOMETRIOSIS
     Dosage: UNK
     Route: 030
     Dates: start: 202003
  4. PREGNYL [Suspect]
     Active Substance: CHORIOGONADOTROPIN ALFA
     Indication: UTERINE LEIOMYOMA
  5. GANIRELIX ACETATE INJECTION [Suspect]
     Active Substance: GANIRELIX ACETATE
     Indication: ENDOMETRIOSIS
     Dosage: STREGTH: 250 MCG/0.5 ML, 250 MICROGRAM, QD
     Route: 058
     Dates: start: 202003
  6. GANIRELIX ACETATE INJECTION [Suspect]
     Active Substance: GANIRELIX ACETATE
     Indication: UTERINE LEIOMYOMA

REACTIONS (4)
  - Headache [Unknown]
  - Abdominal discomfort [Unknown]
  - Abdominal pain [Unknown]
  - Product use in unapproved indication [Unknown]

NARRATIVE: CASE EVENT DATE: 2020
